FAERS Safety Report 14185196 (Version 4)
Quarter: 2018Q1

REPORT INFORMATION
  Report Type: Report from Study
  Country: GB (occurrence: GB)
  Receive Date: 20171114
  Receipt Date: 20180213
  Transmission Date: 20180508
  Serious: Yes (Other)
  Sender: FDA-Public Use
  Company Number: GB-ROCHE-2013241

PATIENT
  Age: 58 Year
  Sex: Female
  Weight: 68.2 kg

DRUGS (10)
  1. SILDENAFIL. [Concomitant]
     Active Substance: SILDENAFIL
     Route: 048
     Dates: start: 20170419
  2. SILDENAFIL. [Concomitant]
     Active Substance: SILDENAFIL
     Indication: RAYNAUD^S PHENOMENON
     Route: 048
     Dates: start: 20170314
  3. CANESTEN [Concomitant]
     Active Substance: CLOTRIMAZOLE
     Indication: PRURITUS
     Route: 048
     Dates: start: 20171030, end: 20171106
  4. RAMIPRIL. [Concomitant]
     Active Substance: RAMIPRIL
     Route: 048
     Dates: start: 20170619, end: 20171102
  5. TOCILIZUMAB. [Suspect]
     Active Substance: TOCILIZUMAB
     Indication: SYSTEMIC SCLERODERMA
     Dosage: MOST RECENT DOSE PRIOR TO AE ONSET ON 04/OCT/2017, 162 MG
     Route: 058
  6. COCODAMOL [Concomitant]
     Active Substance: ACETAMINOPHEN\CODEINE PHOSPHATE
     Indication: SYSTEMIC SCLERODERMA
     Route: 048
     Dates: start: 2015
  7. NAPROXEN. [Concomitant]
     Active Substance: NAPROXEN
     Indication: SYSTEMIC SCLERODERMA
     Route: 048
     Dates: start: 2015
  8. CO-AMOXICLAV [Concomitant]
     Active Substance: AMOXICILLIN\CLAVULANIC ACID
     Route: 048
     Dates: start: 20171025, end: 20171103
  9. TOCILIZUMAB. [Suspect]
     Active Substance: TOCILIZUMAB
     Indication: SYSTEMIC SCLERODERMA
     Route: 058
     Dates: start: 20171018
  10. LANSOPRAZOLE. [Concomitant]
     Active Substance: LANSOPRAZOLE
     Indication: GASTROOESOPHAGEAL REFLUX DISEASE
     Route: 048
     Dates: start: 20170719

REACTIONS (1)
  - Lung neoplasm malignant [Not Recovered/Not Resolved]

NARRATIVE: CASE EVENT DATE: 20171018
